FAERS Safety Report 5494402-2 (Version None)
Quarter: 2007Q4

REPORT INFORMATION
  Report Type: 
  Country: None (occurrence: None)
  Receive Date: 20071024
  Receipt Date: 20071017
  Transmission Date: 20080405
  Serious: Yes (Hospitalization)
  Sender: FDA-Public Use
  Company Number: US-BAYER-200713104BCC

PATIENT
  Age: 80 Year
  Sex: Female
  Weight: 54 kg

DRUGS (8)
  1. ALEVE [Suspect]
     Indication: PAIN
     Dosage: TOTAL DAILY DOSE: 220 MG  UNIT DOSE: 220 MG
     Route: 048
  2. ASPIRIN [Suspect]
     Indication: CARDIOVASCULAR EVENT PROPHYLAXIS
     Dosage: TOTAL DAILY DOSE: 81 MG  UNIT DOSE: 81 MG
     Route: 048
  3. SIMVASTATIN [Concomitant]
  4. SYNTHROID [Concomitant]
  5. BENICAR [Concomitant]
  6. FOSAMAX [Concomitant]
  7. LUNESTA [Concomitant]
  8. MULTIVITAMIN PLUS C,D AND E [Concomitant]

REACTIONS (3)
  - CONSTIPATION [None]
  - ENERGY INCREASED [None]
  - UTERINE LEIOMYOMA [None]
